FAERS Safety Report 8072633-5 (Version None)
Quarter: 2012Q1

REPORT INFORMATION
  Report Type: 
  Country: None (occurrence: None)
  Receive Date: 20120126
  Receipt Date: 20120119
  Transmission Date: 20120608
  Serious: Yes (Life-Threatening, Hospitalization)
  Sender: FDA-Public Use
  Company Number: US-BAYER-201013068NA

PATIENT
  Age: 23 Year
  Sex: Female
  Weight: 87.982 kg

DRUGS (11)
  1. YASMIN [Suspect]
     Indication: CONTRACEPTION
     Route: 048
     Dates: start: 20040401, end: 20080101
  2. VICODIN [Concomitant]
     Indication: PAIN MANAGEMENT
  3. DILAUDID [Concomitant]
     Indication: PAIN MANAGEMENT
     Dosage: UNK
     Dates: start: 20080204
  4. AMBIEN [Concomitant]
  5. PENICILLIN VK [Concomitant]
     Dosage: UNK
     Dates: start: 20071230
  6. POTASSIUM CHLORIDE [Concomitant]
     Indication: HYPOKALAEMIA
     Dosage: UNK
     Route: 042
     Dates: start: 20080201
  7. PROTONIX [Concomitant]
  8. ZOSYN [Concomitant]
  9. HYDROCODONE BITARTRATE [Concomitant]
  10. ACETAMINOPHEN [Concomitant]
  11. IBUPROFEN [Concomitant]
     Indication: PAIN MANAGEMENT

REACTIONS (3)
  - PORTAL VEIN THROMBOSIS [None]
  - THROMBOSIS [None]
  - THROMBOSIS MESENTERIC VESSEL [None]
